FAERS Safety Report 5763201-6 (Version None)
Quarter: 2008Q2

REPORT INFORMATION
  Report Type: 
  Country: None (occurrence: None)
  Receive Date: 20080609
  Receipt Date: 20080528
  Transmission Date: 20081010
  Serious: Yes (Other)
  Sender: FDA-Public Use
  Company Number: US-ELI_LILLY_AND_COMPANY-US200804005228

PATIENT
  Sex: Female

DRUGS (2)
  1. EVISTA [Suspect]
     Indication: PROPHYLAXIS
     Dosage: 60 MG, DAILY (1/D)
  2. SYNTHROID [Concomitant]

REACTIONS (3)
  - ANEURYSM [None]
  - RETINAL HAEMORRHAGE [None]
  - TELANGIECTASIA [None]
